FAERS Safety Report 11884631 (Version 3)
Quarter: 2017Q1

REPORT INFORMATION
  Report Type: Spontaneous
  Country: US (occurrence: US)
  Receive Date: 20160104
  Receipt Date: 20170103
  Transmission Date: 20170428
  Serious: Yes (Other)
  Sender: FDA-Public Use
  Company Number: US-PFIZER INC-2015467685

PATIENT
  Age: 53 Year
  Sex: Male

DRUGS (7)
  1. DOXORUBICIN HCL [Suspect]
     Active Substance: DOXORUBICIN HYDROCHLORIDE
     Indication: B-CELL TYPE ACUTE LEUKAEMIA
     Dosage: UNK UNK, CYCLIC
     Dates: start: 2014, end: 2014
  2. CYTARABINE. [Suspect]
     Active Substance: CYTARABINE
     Indication: B-CELL TYPE ACUTE LEUKAEMIA
     Dosage: UNK UNK, CYCLIC (1 CYCLE)
     Dates: start: 2014, end: 2014
  3. CYCLOPHOSPHAMIDE. [Suspect]
     Active Substance: CYCLOPHOSPHAMIDE
     Indication: B-CELL TYPE ACUTE LEUKAEMIA
     Dosage: UNK UNK, CYCLIC
     Dates: start: 2014, end: 2014
  4. RITUXIMAB [Suspect]
     Active Substance: RITUXIMAB
     Indication: B-CELL TYPE ACUTE LEUKAEMIA
     Dosage: UNK UNK, CYCLIC
     Dates: start: 2014, end: 2014
  5. METHOTREXATE. [Suspect]
     Active Substance: METHOTREXATE
     Indication: B-CELL TYPE ACUTE LEUKAEMIA
     Dosage: UNK, CYCLIC (1 CYCLE)
     Dates: start: 2014, end: 2014
  6. DEXAMETHASONE. [Suspect]
     Active Substance: DEXAMETHASONE
     Indication: B-CELL TYPE ACUTE LEUKAEMIA
     Dosage: UNK, CYCLIC
     Dates: start: 2014, end: 2014
  7. VINCRISTINE SULFATE. [Suspect]
     Active Substance: VINCRISTINE SULFATE
     Indication: B-CELL TYPE ACUTE LEUKAEMIA
     Dosage: UNK UNK, CYCLIC
     Dates: start: 2014, end: 2014

REACTIONS (2)
  - Escherichia sepsis [Unknown]
  - Pneumonia fungal [Unknown]
